FAERS Safety Report 5650562-1 (Version None)
Quarter: 2008Q1

REPORT INFORMATION
  Report Type: 
  Country: None (occurrence: None)
  Receive Date: 20080305
  Receipt Date: 20080226
  Transmission Date: 20080703
  Serious: Yes (Other)
  Sender: FDA-Public Use
  Company Number: US-ROCHE-537105

PATIENT
  Age: 49 Year
  Sex: Female
  Weight: 78 kg

DRUGS (1)
  1. BONIVA [Suspect]
     Indication: OSTEOPOROSIS
     Route: 048
     Dates: start: 20071113, end: 20071113

REACTIONS (5)
  - DYSPNOEA [None]
  - IMMOBILE [None]
  - MYALGIA [None]
  - RHABDOMYOLYSIS [None]
  - URINARY RETENTION [None]
